FAERS Safety Report 9232009 (Version 6)
Quarter: 2013Q3

REPORT INFORMATION
  Report Type: Spontaneous
  Country: BR (occurrence: BR)
  Receive Date: 20130415
  Receipt Date: 20130828
  Transmission Date: 20140515
  Serious: Yes (Death, Other)
  Sender: FDA-Public Use
  Company Number: BR-PFIZER INC-2013115771

PATIENT
  Sex: Female

DRUGS (2)
  1. OLMETEC HCT [Suspect]
     Indication: HYPERTENSION
     Dosage: OLMESARTAN MEDOXOMIL 40 MG/ HYDROCHLOROTHIAZIDE 25 MG, DAILY
     Route: 048
     Dates: start: 20090311
  2. NORVASC [Suspect]
     Indication: HYPERTENSION
     Dosage: 5 MG, DAILY
     Route: 048
     Dates: start: 2010

REACTIONS (2)
  - Infarction [Fatal]
  - Cerebrovascular accident [Fatal]
